FAERS Safety Report 9050019 (Version 1)
Quarter: 2013Q1

REPORT INFORMATION
  Report Type: Spontaneous
  Country: US (occurrence: US)
  Receive Date: 20130205
  Receipt Date: 20130205
  Transmission Date: 20140127
  Serious: No
  Sender: FDA-Public Use
  Company Number: US-GLAXOSMITHKLINE-A0980350A

PATIENT
  Age: 82 Year
  Sex: Female

DRUGS (3)
  1. ARIXTRA [Suspect]
     Indication: THROMBOSIS
     Dosage: 1INJ PER DAY
     Route: 058
     Dates: start: 2009
  2. METOPROLOL SUCCINATE [Concomitant]
  3. VITAMINS [Concomitant]

REACTIONS (7)
  - Chromaturia [Not Recovered/Not Resolved]
  - Skin irritation [Unknown]
  - Blister [Unknown]
  - Pruritus [Unknown]
  - Nocturia [Unknown]
  - Urinary incontinence [Unknown]
  - Hypersensitivity [Unknown]
